FAERS Safety Report 5266739-3 (Version None)
Quarter: 2007Q1

REPORT INFORMATION
  Report Type: 
  Country: None (occurrence: None)
  Receive Date: 20070305
  Receipt Date: 20070219
  Transmission Date: 20070707
  Serious: Yes (Other)
  Sender: FDA-Public Use
  Company Number: B0460155A

PATIENT
  Age: 49 Year
  Sex: Male

DRUGS (3)
  1. LITHIUM SALT (FORMULATION UNKNOWN) (LITHIUM SALT) [Suspect]
     Indication: BIPOLAR I DISORDER
  2. AMILORIDE (FORMULATION UNKNOWN) (AMILORIDE) [Suspect]
  3. CHLORPROMAZINE HCL [Concomitant]

REACTIONS (4)
  - NEPHRITIS INTERSTITIAL [None]
  - NEPHROPATHY TOXIC [None]
  - RENAL IMPAIRMENT [None]
  - THERAPEUTIC AGENT TOXICITY [None]
